FAERS Safety Report 12640546 (Version 2)
Quarter: 2016Q4

REPORT INFORMATION
  Report Type: Spontaneous
  Country: BE (occurrence: BE)
  Receive Date: 20160810
  Receipt Date: 20161027
  Transmission Date: 20170207
  Serious: Yes (Hospitalization, Other)
  Sender: FDA-Public Use
  Company Number: BE-ELI_LILLY_AND_COMPANY-BE201607013096

PATIENT
  Sex: Male
  Weight: 52 kg

DRUGS (5)
  1. RISPERDAL CONSTA [Concomitant]
     Active Substance: RISPERIDONE
     Indication: PRODUCT USED FOR UNKNOWN INDICATION
     Dosage: 50 MG, UNKNOWN
     Route: 065
  2. ZYPADHERA [Suspect]
     Active Substance: OLANZAPINE PAMOATE
     Indication: SCHIZOPHRENIA
     Dosage: UNK, UNKNOWN
     Route: 030
     Dates: start: 20151027
  3. CLOPIXOL                           /00876703/ [Concomitant]
     Active Substance: ZUCLOPENTHIXOL HYDROCHLORIDE
     Indication: PSYCHOTIC DISORDER
     Dosage: UNK, UNKNOWN
     Route: 065
     Dates: start: 20151202
  4. ZYPADHERA [Suspect]
     Active Substance: OLANZAPINE PAMOATE
     Dosage: 405 MG, UNKNOWN
     Route: 030
     Dates: start: 20151202, end: 20160523
  5. LORAZEPAM. [Concomitant]
     Active Substance: LORAZEPAM
     Dosage: UNK, UNKNOWN
     Route: 065

REACTIONS (6)
  - Chronic lymphocytic leukaemia [Unknown]
  - Confusional state [Recovered/Resolved]
  - Extrapyramidal disorder [Recovered/Resolved]
  - Asthenia [Recovered/Resolved]
  - Muscle rigidity [Recovered/Resolved]
  - Sedation [Recovered/Resolved]
